FAERS Safety Report 16892080 (Version 2)
Quarter: 2020Q2

REPORT INFORMATION
  Report Type: Report from Study
  Country: US (occurrence: US)
  Receive Date: 20191007
  Receipt Date: 20200511
  Transmission Date: 20200713
  Serious: Yes (Other)
  Sender: FDA-Public Use
  Company Number: US-SHIRE-US201932122

PATIENT
  Age: 40 Year
  Sex: Female
  Weight: 114 kg

DRUGS (1)
  1. GATTEX [Suspect]
     Active Substance: TEDUGLUTIDE\WATER
     Indication: SHORT-BOWEL SYNDROME
     Dosage: UNK
     Route: 065
     Dates: start: 201310, end: 2015

REACTIONS (6)
  - Ovarian mass [Recovered/Resolved with Sequelae]
  - Obstruction [Recovered/Resolved]
  - Sinusitis [Recovered/Resolved with Sequelae]
  - Feeling abnormal [Recovered/Resolved]
  - Abdominal pain upper [Recovered/Resolved with Sequelae]
  - Precancerous cells present [Recovered/Resolved]

NARRATIVE: CASE EVENT DATE: 2013
